FAERS Safety Report 9301018 (Version 2)
Quarter: 2013Q2

REPORT INFORMATION
  Report Type: Spontaneous
  Country: US (occurrence: US)
  Receive Date: 20130521
  Receipt Date: 20130627
  Transmission Date: 20140414
  Serious: Yes (Other)
  Sender: FDA-Public Use
  Company Number: US-PFIZER INC-2013152460

PATIENT
  Sex: Male
  Weight: 175 kg

DRUGS (17)
  1. NAVANE [Suspect]
     Indication: PSYCHOTIC DISORDER
     Dosage: 10 MG, 3X/DAY
     Dates: start: 1978
  2. NAVANE [Suspect]
     Dosage: UNK
     Dates: start: 1978
  3. PAXIL [Concomitant]
     Dosage: 10 MG, 3X/DAY
  4. TRILEPTAL [Concomitant]
     Dosage: 300 MG, 3X/DAY
  5. KLONOPIN [Concomitant]
     Dosage: 1 MG, 4X/DAY
  6. METOPROLOL [Concomitant]
     Dosage: 100 MG, 1X/DAY
  7. HYZAAR [Concomitant]
     Dosage: LOSARTAN POTASSIUM 100MG / HYDROCHLOROTHIAZIDE 25 MG, 1X/DAY
  8. KLOR-CON [Concomitant]
     Dosage: 1 DF, 1X/DAY
  9. ABILIFY [Concomitant]
     Dosage: 20 MG, UNK
  10. LASIX [Concomitant]
     Indication: HYPERTENSION
     Dosage: 40 MG, 2X/DAY
  11. TAMSULOSIN [Concomitant]
     Indication: PROSTATIC DISORDER
     Dosage: UNK
  12. LEVOTHYROXINE [Concomitant]
     Indication: HYPOTHYROIDISM
     Dosage: 100 MG, 1X/DAY
  13. GERITOL [Concomitant]
     Indication: VITAMIN SUPPLEMENTATION
     Dosage: UNK, 1X/DAY
  14. RANITIDINE [Concomitant]
     Indication: GASTROOESOPHAGEAL REFLUX DISEASE
     Dosage: 100 MG, 2X/DAY
  15. NORVASC [Concomitant]
     Dosage: 10 MG, 1X/DAY
  16. METOLAZONE [Concomitant]
     Dosage: 0.5 MG, 3X/DAY
  17. BABY ASPIRIN [Concomitant]
     Dosage: UNK

REACTIONS (2)
  - Tardive dyskinesia [Unknown]
  - Torticollis [Not Recovered/Not Resolved]
